FAERS Safety Report 18644021 (Version 1)
Quarter: 2020Q4

REPORT INFORMATION
  Report Type: Spontaneous
  Country: US (occurrence: US)
  Receive Date: 20201221
  Receipt Date: 20201221
  Transmission Date: 20210114
  Serious: Yes (Life-Threatening, Hospitalization, Other)
  Sender: FDA-Public Use
  Company Number: US-PURDUE-USA-2020-0160285

PATIENT
  Sex: Female

DRUGS (1)
  1. OXYCONTIN [Suspect]
     Active Substance: OXYCODONE HYDROCHLORIDE
     Indication: BACK INJURY
     Dosage: 60 MG, Q12H
     Route: 048
     Dates: start: 2003, end: 2008

REACTIONS (3)
  - Hospitalisation [Recovered/Resolved]
  - Quality of life decreased [Unknown]
  - Overdose [Recovered/Resolved]
